FAERS Safety Report 10060421 (Version 2)
Quarter: 2014Q3

REPORT INFORMATION
  Report Type: Spontaneous
  Country: US (occurrence: US)
  Receive Date: 20140404
  Receipt Date: 20140818
  Transmission Date: 20150326
  Serious: Yes (Death, Other)
  Sender: FDA-Public Use
  Company Number: US-009507513-1404USA003427

PATIENT
  Sex: Male
  Weight: 125.17 kg

DRUGS (5)
  1. JANUVIA [Suspect]
     Active Substance: SITAGLIPTIN PHOSPHATE
     Dosage: 100 MG QD
     Route: 048
     Dates: start: 20110523, end: 20121124
  2. JANUVIA [Suspect]
     Active Substance: SITAGLIPTIN PHOSPHATE
     Dosage: 100 MG, QD
     Route: 048
     Dates: start: 20121130, end: 20121210
  3. JANUVIA [Suspect]
     Active Substance: SITAGLIPTIN PHOSPHATE
     Indication: TYPE 2 DIABETES MELLITUS
     Dosage: 100 MG, MG QD
     Route: 048
     Dates: start: 20081003, end: 20081119
  4. JANUVIA [Suspect]
     Active Substance: SITAGLIPTIN PHOSPHATE
     Dosage: 100 MG QD
     Route: 048
     Dates: start: 20110426, end: 20110510
  5. BYETTA [Suspect]
     Active Substance: EXENATIDE
     Indication: TYPE 2 DIABETES MELLITUS
     Dosage: 5 MCG BID
     Dates: start: 20050826, end: 20050916

REACTIONS (22)
  - Coronary artery bypass [Unknown]
  - Mouth injury [Unknown]
  - Erectile dysfunction [Unknown]
  - Eye operation [Unknown]
  - Ischaemic cardiomyopathy [Unknown]
  - Osteoarthritis [Unknown]
  - Adenocarcinoma pancreas [Unknown]
  - Pancreaticoduodenectomy [Unknown]
  - Blindness [Unknown]
  - Pancreatitis [Unknown]
  - Cataract operation [Unknown]
  - Vision blurred [Unknown]
  - Diabetic retinopathy [Unknown]
  - Death [Fatal]
  - Prostatomegaly [Unknown]
  - Cholelithiasis [Unknown]
  - Carpal tunnel decompression [Unknown]
  - Basal cell carcinoma [Unknown]
  - Gait disturbance [Unknown]
  - Neuropathy peripheral [Unknown]
  - Adrenal adenoma [Unknown]
  - Biliary dilatation [Unknown]

NARRATIVE: CASE EVENT DATE: 20081003
